FAERS Safety Report 6976871-1 (Version None)
Quarter: 2010Q3

REPORT INFORMATION
  Report Type: 
  Country: None (occurrence: None)
  Receive Date: 20100910
  Receipt Date: 20100903
  Transmission Date: 20110219
  Serious: Yes (Other)
  Sender: FDA-Public Use
  Company Number: B0671968A

PATIENT
  Sex: Female
  Weight: 81 kg

DRUGS (4)
  1. LAPATINIB [Suspect]
     Indication: BREAST CANCER
     Route: 048
     Dates: start: 20091004
  2. DOCETAXEL [Suspect]
     Indication: BREAST CANCER
     Dosage: 75MGM2 EVERY 3 WEEKS
     Route: 042
     Dates: start: 20091004, end: 20091116
  3. DICLOFENAC [Suspect]
     Indication: MYALGIA
     Dosage: 50MG AS REQUIRED
     Route: 048
     Dates: start: 20091026
  4. ZOSTEX [Suspect]
     Indication: HERPES ZOSTER
     Dosage: 125MG PER DAY
     Route: 048
     Dates: start: 20100328, end: 20100404

REACTIONS (5)
  - ALANINE AMINOTRANSFERASE [None]
  - ASPARTATE AMINOTRANSFERASE [None]
  - BLOOD ALKALINE PHOSPHATASE [None]
  - CHRONIC FATIGUE SYNDROME [None]
  - GAMMA-GLUTAMYLTRANSFERASE INCREASED [None]
